FAERS Safety Report 23102819 (Version 1)
Quarter: 2023Q4

REPORT INFORMATION
  Report Type: Spontaneous
  Country: US (occurrence: US)
  Receive Date: 20231025
  Receipt Date: 20231025
  Transmission Date: 20240109
  Serious: Yes (Hospitalization)
  Sender: FDA-Public Use
  Company Number: US-drreddys-LIT/USA/23/0180471

PATIENT
  Age: 58 Year
  Sex: Female

DRUGS (2)
  1. NAPROXEN [Suspect]
     Active Substance: NAPROXEN
     Indication: Pyrexia
     Dosage: TWO DOSES
  2. PREDNISONE [Suspect]
     Active Substance: PREDNISONE
     Indication: Pyrexia

REACTIONS (3)
  - Disease recurrence [Unknown]
  - Pyrexia [Unknown]
  - Drug ineffective [Unknown]
